FAERS Safety Report 25291032 (Version 1)
Quarter: 2025Q2

REPORT INFORMATION
  Report Type: Spontaneous
  Country: US (occurrence: US)
  Receive Date: 20250510
  Receipt Date: 20250510
  Transmission Date: 20250717
  Serious: No
  Sender: SANOFI AVENTIS
  Company Number: US-SA-2025SA123314

PATIENT
  Sex: Female
  Weight: 59.64 kg

DRUGS (18)
  1. KEVZARA [Suspect]
     Active Substance: SARILUMAB
     Indication: Polymyalgia rheumatica
     Dosage: 200 MG, QOW
     Route: 058
  2. OMEPRAZOLE [Concomitant]
     Active Substance: OMEPRAZOLE
  3. SYNTHROID [Concomitant]
     Active Substance: LEVOTHYROXINE SODIUM
  4. JARDIANCE [Concomitant]
     Active Substance: EMPAGLIFLOZIN
  5. DULOXETINE HYDROCHLORIDE [Concomitant]
     Active Substance: DULOXETINE HYDROCHLORIDE
  6. HYDROCHLOROTHIAZIDE [Concomitant]
     Active Substance: HYDROCHLOROTHIAZIDE
  7. DILTIAZEM [Concomitant]
     Active Substance: DILTIAZEM
  8. ATENOLOL [Concomitant]
     Active Substance: ATENOLOL
  9. GABAPENTIN [Concomitant]
     Active Substance: GABAPENTIN
  10. TRULICITY [Concomitant]
     Active Substance: DULAGLUTIDE
  11. HYDROCODONE BITARTRATE AND ACETAMINOPHEN [Concomitant]
     Active Substance: ACETAMINOPHEN\HYDROCODONE BITARTRATE
  12. SUMATRIPTAN SUCCINATE [Concomitant]
     Active Substance: SUMATRIPTAN SUCCINATE
  13. PROCHLORPERAZINE MALEATE [Concomitant]
     Active Substance: PROCHLORPERAZINE MALEATE
  14. VITAMINS [Concomitant]
     Active Substance: VITAMINS
  15. LIDOCAINE [Concomitant]
     Active Substance: LIDOCAINE
  16. LOSARTAN POTASSIUM [Concomitant]
     Active Substance: LOSARTAN POTASSIUM
  17. REPATHA [Concomitant]
     Active Substance: EVOLOCUMAB
  18. OPIUM TINCTURE [Concomitant]
     Active Substance: MORPHINE

REACTIONS (2)
  - Peripheral swelling [Unknown]
  - Swelling face [Unknown]
